FAERS Safety Report 15674813 (Version 2)
Quarter: 2019Q1

REPORT INFORMATION
  Report Type: Spontaneous
  Country: JP (occurrence: JP)
  Receive Date: 20181130
  Receipt Date: 20190123
  Transmission Date: 20190417
  Serious: Yes (Death, Life-Threatening, Other)
  Sender: FDA-Public Use
  Company Number: JP-CLINIGEN GROUP PLC/ CLINIGEN HEALTHCARE LTD-JP-CLGN-18-00489

PATIENT
  Age: 7 Year
  Sex: Female
  Weight: 17 kg

DRUGS (4)
  1. PROGRAF [Concomitant]
     Active Substance: TACROLIMUS\TACROLIMUS ANHYDROUS
     Indication: PRODUCT USED FOR UNKNOWN INDICATION
  2. TEMCELL [Concomitant]
     Indication: PRODUCT USED FOR UNKNOWN INDICATION
  3. FOSCARNET SODIUM. [Suspect]
     Active Substance: FOSCARNET SODIUM
     Indication: HUMAN HERPESVIRUS 6 INFECTION
  4. FOSCARNET SODIUM. [Suspect]
     Active Substance: FOSCARNET SODIUM
     Indication: ENCEPHALITIS VIRAL
     Route: 041

REACTIONS (6)
  - Graft versus host disease [Unknown]
  - Respiratory failure [Fatal]
  - Off label use [Unknown]
  - Pneumonia [Unknown]
  - Neurological symptom [Unknown]
  - Thrombotic microangiopathy [Unknown]
